FAERS Safety Report 7071121-2 (Version None)
Quarter: 2010Q4

REPORT INFORMATION
  Report Type: 
  Country: None (occurrence: None)
  Receive Date: 20101029
  Receipt Date: 20101020
  Transmission Date: 20110411
  Serious: No
  Sender: FDA-Public Use
  Company Number: US-PFIZER INC-2010133812

PATIENT

DRUGS (3)
  1. GEODON [Suspect]
     Dosage: UNK
  2. DESMOPRESSIN ACETATE [Suspect]
     Dosage: UNK
  3. MELATONIN [Suspect]
     Dosage: UNK

REACTIONS (1)
  - MYDRIASIS [None]
